FAERS Safety Report 5826581-9 (Version None)
Quarter: 2008Q3

REPORT INFORMATION
  Report Type: 
  Country: None (occurrence: None)
  Receive Date: 20080729
  Receipt Date: 20080729
  Transmission Date: 20090109
  Serious: Yes (Hospitalization)
  Sender: FDA-Public Use
  Company Number: None

PATIENT
  Age: 65 Year
  Sex: Female

DRUGS (7)
  1. NAPROXEN [Suspect]
     Indication: OSTEOARTHRITIS
     Dosage: 500 MG PO Q12 H ^HISTORY^ OF USE
     Route: 048
  2. MORPHINE [Concomitant]
  3. ESTRADIOL [Concomitant]
  4. LASIX [Concomitant]
  5. OXYBUTYNIN [Concomitant]
  6. FLEXERIL [Concomitant]
  7. CAL WITH VIT D [Concomitant]

REACTIONS (2)
  - RENAL FAILURE ACUTE [None]
  - RENAL TUBULAR NECROSIS [None]
